FAERS Safety Report 21466310 (Version 3)
Quarter: 2023Q2

REPORT INFORMATION
  Report Type: Report from Study
  Country: BY (occurrence: BY)
  Receive Date: 20221017
  Receipt Date: 20230414
  Transmission Date: 20230721
  Serious: Yes (Other)
  Sender: FDA-Public Use
  Company Number: BY-MYLANLABS-2022M1096644

PATIENT
  Age: 56 Year
  Sex: Male
  Weight: 71.5 kg

DRUGS (12)
  1. PRETOMANID [Suspect]
     Active Substance: PRETOMANID
     Indication: Product used for unknown indication
     Dosage: 200 MILLIGRAM, QD (200 MG OD PO)
     Route: 048
     Dates: start: 20220831, end: 20220922
  2. PRETOMANID [Suspect]
     Active Substance: PRETOMANID
     Dosage: 200 MILLIGRAM, QD (200 MG OD PO)
     Route: 048
     Dates: start: 20220831, end: 20220923
  3. BEDAQUILINE [Suspect]
     Active Substance: BEDAQUILINE
     Indication: Product used for unknown indication
     Dosage: 400 MILLIGRAM, QD(400MG OD FOR 2 WKS THEN 200 MG TIW PO)
     Route: 065
     Dates: start: 20220831, end: 202209
  4. BEDAQUILINE [Suspect]
     Active Substance: BEDAQUILINE
     Dosage: 200 MILLIGRAM, 3XW (200 MG TIW PO)
     Route: 048
     Dates: start: 202209, end: 20220922
  5. BEDAQUILINE [Suspect]
     Active Substance: BEDAQUILINE
     Dosage: (400MG OD FOR 2 WKS THEN 200 MG TIW PO)
     Route: 048
     Dates: start: 20220831, end: 20220923
  6. LINEZOLID [Suspect]
     Active Substance: LINEZOLID
     Indication: Product used for unknown indication
     Dosage: 300 MILLIGRAM, QD(300 MG OD PO)
     Route: 048
     Dates: start: 20220831, end: 20220922
  7. LINEZOLID [Suspect]
     Active Substance: LINEZOLID
     Dosage: 300 MILLIGRAM, QD (300 MG OD PO)
     Route: 048
     Dates: start: 20220831, end: 20220923
  8. MOXIFLOXACIN [Suspect]
     Active Substance: MOXIFLOXACIN
     Indication: Product used for unknown indication
     Dosage: 400 MILLIGRAM, QD
     Route: 048
     Dates: start: 20220831, end: 20220922
  9. MOXIFLOXACIN [Suspect]
     Active Substance: MOXIFLOXACIN
     Dosage: 400 MILLIGRAM, QD (400 MG OD PO)
     Route: 048
     Dates: start: 20220831, end: 20220923
  10. BISOPROLOL [Concomitant]
     Active Substance: BISOPROLOL
     Indication: Arrhythmia
     Dosage: 5 MILLIGRAM, QD
     Route: 065
  11. BISOPROLOL [Concomitant]
     Active Substance: BISOPROLOL
     Dosage: 2.5 MILLIGRAM, QD
     Route: 048
     Dates: start: 20220908
  12. Etacizin [Concomitant]
     Dosage: 50 MILLIGRAM, BID
     Route: 065
     Dates: start: 20220929

REACTIONS (2)
  - Ventricular arrhythmia [Recovered/Resolved]
  - Troponin increased [Unknown]

NARRATIVE: CASE EVENT DATE: 20220919
